FAERS Safety Report 5072938-6 (Version None)
Quarter: 2006Q3

REPORT INFORMATION
  Report Type: 
  Country: None (occurrence: None)
  Receive Date: 20060802
  Receipt Date: 20060717
  Transmission Date: 20061208
  Serious: Yes (Hospitalization)
  Sender: FDA-Public Use
  Company Number: AR200607003328

PATIENT
  Age: 66 Year
  Sex: Female

DRUGS (5)
  1. PROZAC [Suspect]
     Dosage: 60 MG, ORAL
     Route: 048
  2. TRANYLCYPROMINE SULFATE [Concomitant]
  3. TRIFLUOPERAZINE HCL [Concomitant]
  4. LORAZEPAM [Concomitant]
  5. PANCURONIUM [Concomitant]

REACTIONS (2)
  - EYE MOVEMENT DISORDER [None]
  - SEROTONIN SYNDROME [None]
